FAERS Safety Report 11410754 (Version 1)
Quarter: 2015Q3

REPORT INFORMATION
  Report Type: Spontaneous
  Country: TR (occurrence: TR)
  Receive Date: 20150824
  Receipt Date: 20150824
  Transmission Date: 20151125
  Serious: Yes (Death, Other)
  Sender: FDA-Public Use
  Company Number: TR-PFIZER INC-2015269367

PATIENT
  Age: 2 Year
  Sex: Female

DRUGS (5)
  1. CYTARABINE. [Concomitant]
     Active Substance: CYTARABINE
     Indication: ACUTE MYELOID LEUKAEMIA
     Dosage: 1 G/M2/DAY FOR 5 DAYS
  2. SUNITINIB MALATE. [Suspect]
     Active Substance: SUNITINIB MALATE
     Indication: ACUTE MYELOID LEUKAEMIA
     Dosage: 15 MG/M2, DAILY
  3. SUNITINIB MALATE. [Suspect]
     Active Substance: SUNITINIB MALATE
     Dosage: 7.5 MG/M2, DAILY
  4. SORAFENIB [Suspect]
     Active Substance: SORAFENIB
     Indication: ACUTE MYELOID LEUKAEMIA
     Dosage: 200 MG/M2, DAILY
  5. CLOFARABINE [Concomitant]
     Active Substance: CLOFARABINE
     Indication: ACUTE MYELOID LEUKAEMIA
     Dosage: 40 MG/M2, CYCLIC, PER DAY FOR 5 DAYS

REACTIONS (6)
  - Neutropenic sepsis [Fatal]
  - Pulmonary haemorrhage [Fatal]
  - Hypertension [Unknown]
  - Pancytopenia [Fatal]
  - Gastrointestinal haemorrhage [Fatal]
  - Product use issue [Unknown]
